FAERS Safety Report 13831132 (Version 1)
Quarter: 2017Q3

REPORT INFORMATION
  Report Type: Spontaneous
  Country: GB (occurrence: GB)
  Receive Date: 20170803
  Receipt Date: 20170803
  Transmission Date: 20171127
  Serious: Yes (Other)
  Sender: FDA-Public Use
  Company Number: GB-TEVA-791801ACC

PATIENT
  Age: 85 Year
  Sex: Female
  Weight: 76 kg

DRUGS (18)
  1. PROCHLORPERAZINE. [Concomitant]
     Active Substance: PROCHLORPERAZINE
     Dosage: 3 DOSAGE FORMS DAILY;
     Dates: start: 20170623, end: 20170702
  2. CARBOCISTEINE [Concomitant]
     Active Substance: CARBOCYSTEINE
     Dosage: 3 DOSAGE FORMS DAILY;
     Dates: start: 20160920
  3. FYBOGEL [Concomitant]
     Active Substance: PLANTAGO OVATA SEED
     Dosage: 1 DOSAGE FORMS DAILY;
     Dates: start: 20130416
  4. TIOTROPIUM [Concomitant]
     Active Substance: TIOTROPIUM
     Dosage: 1 DOSAGE FORMS DAILY;
     Route: 055
     Dates: start: 20160720
  5. UNIROID [Concomitant]
     Dosage: 3 DOSAGE FORMS DAILY;
     Dates: start: 20170706
  6. ATORVASTATIN [Concomitant]
     Active Substance: ATORVASTATIN
     Dosage: 1 DOSAGE FORMS DAILY;
     Dates: start: 20160422
  7. BISOPROLOL [Concomitant]
     Active Substance: BISOPROLOL
     Dosage: 1 DOSAGE FORMS DAILY;
     Dates: start: 20170210
  8. LAXIDO [Concomitant]
     Active Substance: POLYETHYLENE GLYCOL 3350\POTASSIUM CHLORIDE\SODIUM BICARBONATE\SODIUM CHLORIDE
     Dosage: 1 DOSAGE FORMS DAILY;
     Dates: start: 20141217
  9. SPIRONOLACTONE. [Concomitant]
     Active Substance: SPIRONOLACTONE
     Dosage: 1 DOSAGE FORMS DAILY;
     Dates: start: 20161214
  10. LEVOFLOXACIN. [Suspect]
     Active Substance: LEVOFLOXACIN
     Dates: start: 20170619
  11. BUMETANIDE. [Concomitant]
     Active Substance: BUMETANIDE
     Dosage: 2 DOSAGE FORMS DAILY;
     Dates: start: 20170309
  12. CO-DYDRAMOL [Concomitant]
     Active Substance: ACETAMINOPHEN\DIHYDROCODEINE
     Dosage: 1 OR 2 TABLETS FOUR TIMES A DAY
     Dates: start: 20170410
  13. PREDNISOLONE. [Concomitant]
     Active Substance: PREDNISOLONE
     Indication: CHRONIC OBSTRUCTIVE PULMONARY DISEASE
     Dosage: 6 DOSAGE FORMS DAILY;
     Dates: start: 20170623, end: 20170630
  14. WARFARIN SODIUM. [Concomitant]
     Active Substance: WARFARIN SODIUM
     Dosage: TAKE ONE AS DIRECTED
     Dates: start: 20170112
  15. DOXYCYCLINE. [Concomitant]
     Active Substance: DOXYCYCLINE
     Dosage: TWO NOW THEN ONE DAILY
     Dates: start: 20170609, end: 20170616
  16. LOSARTAN. [Concomitant]
     Active Substance: LOSARTAN
     Dosage: 1 DOSAGE FORMS DAILY;
     Dates: start: 20160720
  17. OMEPRAZOLE. [Concomitant]
     Active Substance: OMEPRAZOLE
     Dosage: 2 DOSAGE FORMS DAILY;
     Dates: start: 20161214
  18. HYOSCINE BUTYLBROMIDE [Concomitant]
     Active Substance: BUTYLSCOPOLAMINE
     Dosage: 8 DOSAGE FORMS DAILY;
     Dates: start: 20170609, end: 20170616

REACTIONS (5)
  - Vomiting [Recovered/Resolved]
  - Diarrhoea [Recovered/Resolved]
  - Myalgia [Recovering/Resolving]
  - Lethargy [Recovering/Resolving]
  - Decreased appetite [Recovered/Resolved]

NARRATIVE: CASE EVENT DATE: 20170619
